FAERS Safety Report 6860302-6 (Version None)
Quarter: 2010Q3

REPORT INFORMATION
  Report Type: 
  Country: None (occurrence: None)
  Receive Date: 20100720
  Receipt Date: 20100706
  Transmission Date: 20110219
  Serious: Yes (Other)
  Sender: FDA-Public Use
  Company Number: CA-GENENTECH-259806

PATIENT
  Sex: Female
  Weight: 95.2 kg

DRUGS (5)
  1. XOLAIR [Suspect]
     Indication: ASTHMA
     Dosage: 450 MG, Q2W
     Route: 058
     Dates: start: 20051111
  2. XOLAIR [Suspect]
     Dosage: 450 MG, Q2W
     Route: 058
     Dates: start: 20100330
  3. XOLAIR [Suspect]
     Dosage: 450 MG, Q2W
     Route: 058
     Dates: start: 20100413
  4. BENADRYL [Concomitant]
     Indication: IODINE ALLERGY
  5. CORTISONE [Concomitant]
     Indication: IODINE ALLERGY

REACTIONS (14)
  - ANXIETY [None]
  - BLOOD PRESSURE SYSTOLIC INCREASED [None]
  - CYANOSIS [None]
  - DYSPNOEA [None]
  - EYE PAIN [None]
  - HEADACHE [None]
  - HYPERSENSITIVITY [None]
  - OEDEMA [None]
  - OEDEMA PERIPHERAL [None]
  - PRURITUS [None]
  - SUFFOCATION FEELING [None]
  - SWELLING FACE [None]
  - TOTAL LUNG CAPACITY DECREASED [None]
  - WEIGHT INCREASED [None]
